FAERS Safety Report 17010191 (Version 1)
Quarter: 2019Q4

REPORT INFORMATION
  Report Type: Spontaneous
  Country: US (occurrence: US)
  Receive Date: 20190930
  Receipt Date: 20190930
  Transmission Date: 20200122
  Serious: Yes (Other)
  Sender: FDA-Public Use
  Company Number: None

PATIENT
  Age: 72 Year
  Sex: Female

DRUGS (15)
  1. ALVESCO [Concomitant]
     Active Substance: CICLESONIDE
  2. SILDENAFIL. [Concomitant]
     Active Substance: SILDENAFIL
  3. LISINOPRIL. [Concomitant]
     Active Substance: LISINOPRIL
  4. FUROSEMIDE. [Concomitant]
     Active Substance: FUROSEMIDE
  5. CELLCEPT [Concomitant]
     Active Substance: MYCOPHENOLATE MOFETIL\MYCOPHENOLATE MOFETIL HYDROCHLORIDE
  6. PREDNISONE. [Concomitant]
     Active Substance: PREDNISONE
  7. CETIRIZINE [Concomitant]
     Active Substance: CETIRIZINE HYDROCHLORIDE
  8. FOLIC ACID. [Concomitant]
     Active Substance: FOLIC ACID
  9. FAMOTIDINE. [Concomitant]
     Active Substance: FAMOTIDINE
  10. ALLOPURINOL. [Concomitant]
     Active Substance: ALLOPURINOL
  11. ATORVASTATIN [Concomitant]
     Active Substance: ATORVASTATIN
  12. OPSUMIT [Suspect]
     Active Substance: MACITENTAN
     Route: 048
  13. K-TAB [Concomitant]
     Active Substance: POTASSIUM CHLORIDE
  14. HYDROXYCHLOROQUINE [Concomitant]
     Active Substance: HYDROXYCHLOROQUINE
  15. PANTOPRAZOLE [Concomitant]
     Active Substance: PANTOPRAZOLE

REACTIONS (2)
  - Urticaria [None]
  - Rash [None]

NARRATIVE: CASE EVENT DATE: 20190913
